FAERS Safety Report 6980575-9 (Version None)
Quarter: 2010Q3

REPORT INFORMATION
  Report Type: 
  Country: None (occurrence: None)
  Receive Date: 20100914
  Receipt Date: 20100908
  Transmission Date: 20110219
  Serious: Yes (Hospitalization, Other)
  Sender: FDA-Public Use
  Company Number: CN-SANOFI-AVENTIS-2010SA053754

PATIENT
  Age: 58 Year
  Sex: Female
  Weight: 60 kg

DRUGS (2)
  1. LANTUS [Suspect]
     Indication: DIABETES MELLITUS
     Route: 058
     Dates: start: 20090801
  2. INSULIN ISOPHANE, HUMAN BIOSYNTHETIC [Concomitant]
     Indication: DIABETES MELLITUS
     Route: 058
     Dates: start: 20090801

REACTIONS (1)
  - RETINAL HAEMORRHAGE [None]
